FAERS Safety Report 5238301-X (Version None)
Quarter: 2007Q1

REPORT INFORMATION
  Report Type: 
  Country: None (occurrence: None)
  Receive Date: 20070215
  Receipt Date: 20070206
  Transmission Date: 20070707
  Serious: Yes (Other)
  Sender: FDA-Public Use
  Company Number: PHFR2006GB03561

PATIENT
  Age: 46 Year
  Sex: Female
  Weight: 78 kg

DRUGS (5)
  1. NEORAL [Suspect]
     Indication: RENAL TRANSPLANT
     Dosage: 150 MG, BID
     Route: 048
     Dates: start: 20001010
  2. ATENOLOL [Concomitant]
     Indication: HYPERTENSION
     Dosage: 50MG/DAY
     Route: 048
  3. DOXAZOSIN MESYLATE [Concomitant]
     Indication: HYPERTENSION
     Dosage: 8MG/DAY
     Route: 048
  4. PREDNISOLONE [Suspect]
     Indication: RENAL TRANSPLANT
     Route: 065
  5. AZATHIOPRINE [Concomitant]
     Indication: RENAL TRANSPLANT
     Dosage: 100 MG/DAY
     Route: 048

REACTIONS (2)
  - BENIGN INTRACRANIAL HYPERTENSION [None]
  - HEADACHE [None]
